FAERS Safety Report 6637426-1 (Version None)
Quarter: 2010Q1

REPORT INFORMATION
  Report Type: 
  Country: None (occurrence: None)
  Receive Date: 20100311
  Receipt Date: 20100301
  Transmission Date: 20100710
  Serious: Yes (Other)
  Sender: FDA-Public Use
  Company Number: AXC-2010-000053

PATIENT
  Sex: Female

DRUGS (1)
  1. MESALAMINE [Suspect]
     Indication: COLITIS ULCERATIVE
     Dosage: 1500 MG QD

REACTIONS (12)
  - ANTINUCLEAR ANTIBODY POSITIVE [None]
  - BIOPSY SKIN ABNORMAL [None]
  - DRUG INEFFECTIVE [None]
  - EPIGASTRIC DISCOMFORT [None]
  - GASTRITIS ATROPHIC [None]
  - GASTROINTESTINAL HAEMORRHAGE [None]
  - MUSCULOSKELETAL STIFFNESS [None]
  - OEDEMA PERIPHERAL [None]
  - PULMONARY FIBROSIS [None]
  - REFLUX OESOPHAGITIS [None]
  - SCLERODACTYLIA [None]
  - SYSTEMIC SCLEROSIS [None]
